FAERS Safety Report 5694906-3 (Version None)
Quarter: 2008Q2

REPORT INFORMATION
  Report Type: 
  Country: None (occurrence: None)
  Receive Date: 20080404
  Receipt Date: 20080326
  Transmission Date: 20081010
  Serious: Yes (Hospitalization)
  Sender: FDA-Public Use
  Company Number: US-JNJFOC-20080306317

PATIENT
  Sex: Male
  Weight: 25.5 kg

DRUGS (5)
  1. INFLIXIMAB [Suspect]
     Indication: INFLAMMATORY BOWEL DISEASE
     Route: 042
  2. INFLIXIMAB [Suspect]
     Indication: CROHN'S DISEASE
     Route: 042
  3. 6-MP [Concomitant]
     Indication: INFLAMMATORY BOWEL DISEASE
  4. FOLIC ACID [Concomitant]
  5. FER [Concomitant]

REACTIONS (1)
  - GASTROENTERITIS [None]
